FAERS Safety Report 11846541 (Version 1)
Quarter: 2015Q4

REPORT INFORMATION
  Report Type: Other
  Country: US (occurrence: US)
  Receive Date: 20151217
  Receipt Date: 20151217
  Transmission Date: 20160305
  Serious: No
  Sender: FDA-Public Use
  Company Number: US-GALENA BIOPHARMA-1045618

PATIENT
  Sex: Female

DRUGS (2)
  1. ABSTRAL [Suspect]
     Active Substance: FENTANYL CITRATE
     Indication: BREAKTHROUGH PAIN
     Route: 060
     Dates: start: 20141014
  2. OXYCODONE HCL CONTROLLED-RELEASE [Concomitant]
     Active Substance: OXYCODONE HYDROCHLORIDE

REACTIONS (7)
  - Drug ineffective [Unknown]
  - Headache [Unknown]
  - Head discomfort [Unknown]
  - Asthenopia [Unknown]
  - Headache [Unknown]
  - Drug ineffective [Unknown]
  - Drug ineffective [Unknown]

NARRATIVE: CASE EVENT DATE: 20141027
